FAERS Safety Report 20847160 (Version 1)
Quarter: 2022Q2

REPORT INFORMATION
  Report Type: Spontaneous
  Country: BR (occurrence: BR)
  Receive Date: 20220519
  Receipt Date: 20220519
  Transmission Date: 20220720
  Serious: Yes (Hospitalization, Other)
  Sender: FDA-Public Use
  Company Number: BR-NOVOPROD-917467

PATIENT
  Age: 70 Year
  Sex: Female
  Weight: 64 kg

DRUGS (1)
  1. XULTOPHY 100/3.6 [Suspect]
     Active Substance: INSULIN DEGLUDEC\LIRAGLUTIDE
     Indication: Type 2 diabetes mellitus
     Dosage: 16 IU, QD
     Route: 065

REACTIONS (6)
  - Angioplasty [Unknown]
  - Tibia fracture [Unknown]
  - Glycosuria [Unknown]
  - Proteinuria [Unknown]
  - Albuminuria [Recovered/Resolved]
  - Albuminuria [Unknown]

NARRATIVE: CASE EVENT DATE: 20191121
